FAERS Safety Report 6058081-8 (Version None)
Quarter: 2009Q1

REPORT INFORMATION
  Report Type: 
  Country: None (occurrence: None)
  Receive Date: 20090128
  Receipt Date: 20090123
  Transmission Date: 20090719
  Serious: Yes (Hospitalization)
  Sender: FDA-Public Use
  Company Number: 1000003019

PATIENT
  Age: 53 Year
  Sex: Female

DRUGS (4)
  1. THYROID TAB [Suspect]
     Indication: AUTOIMMUNE THYROIDITIS
     Dosage: SEE IMAGE
     Route: 048
     Dates: start: 19900101
  2. THYROID TAB [Suspect]
     Indication: AUTOIMMUNE THYROIDITIS
     Dosage: SEE IMAGE
     Route: 048
     Dates: start: 20080701
  3. THYROID TAB [Suspect]
     Indication: AUTOIMMUNE THYROIDITIS
     Dosage: 60 MG, (60 MG, 1 IN 1 D), ORAL
     Route: 048
     Dates: start: 20080701, end: 20081230
  4. THYROID TAB [Suspect]
     Indication: AUTOIMMUNE THYROIDITIS
     Dosage: 60 MG (60 MG, 1 IN 1 D), ORAL
     Route: 048
     Dates: start: 20090101, end: 20090121

REACTIONS (5)
  - CARDIOVASCULAR DISORDER [None]
  - CELLULITIS [None]
  - GENERALISED OEDEMA [None]
  - SKIN BACTERIAL INFECTION [None]
  - URTICARIA [None]
